FAERS Safety Report 15884723 (Version 6)
Quarter: 2019Q4

REPORT INFORMATION
  Report Type: Report from Study
  Country: AT (occurrence: AT)
  Receive Date: 20190129
  Receipt Date: 20191024
  Transmission Date: 20200122
  Serious: Yes (Hospitalization)
  Sender: FDA-Public Use
  Company Number: AT-ROCHE-2222680

PATIENT
  Age: 67 Year
  Sex: Male
  Weight: 57 kg

DRUGS (25)
  1. ENZALUTAMIDE [Suspect]
     Active Substance: ENZALUTAMIDE
     Indication: HORMONE-REFRACTORY PROSTATE CANCER
     Dosage: ON 22/NOV/2018, HE RECEIVED HIS MOST RECENT DOSE (160 MG) OF ENZALUTAMIDEPRIOR TO THE AE ONSET.?ON 2
     Route: 048
     Dates: start: 20180509
  2. LENDORM [Concomitant]
     Active Substance: BROTIZOLAM
     Route: 048
     Dates: start: 20181204, end: 20181213
  3. LISINOPRIL HCTZ [Concomitant]
     Active Substance: HYDROCHLOROTHIAZIDE\LISINOPRIL
     Route: 048
     Dates: start: 20170625
  4. ASCALAN [Concomitant]
     Active Substance: DOXAZOSIN MESYLATE
     Route: 048
     Dates: start: 20190101, end: 20190120
  5. KALIUM [POTASSIUM CHLORIDE] [Concomitant]
     Route: 048
     Dates: start: 20181115, end: 20181128
  6. ROKIPRIM [Concomitant]
     Route: 042
     Dates: start: 201812, end: 201812
  7. METFORMIN [Concomitant]
     Active Substance: METFORMIN HYDROCHLORIDE
     Route: 048
     Dates: start: 20180418
  8. LYRICA [Concomitant]
     Active Substance: PREGABALIN
     Route: 048
     Dates: start: 20170625
  9. PAMORELIN [Concomitant]
     Active Substance: TRIPTORELIN PAMOATE
     Route: 030
     Dates: start: 20160301
  10. MYCOSTATIN [Concomitant]
     Active Substance: NYSTATIN
     Route: 048
     Dates: start: 20181220, end: 20181231
  11. FLUCONAZOLE. [Concomitant]
     Active Substance: FLUCONAZOLE
     Route: 042
     Dates: start: 20190113, end: 20190117
  12. PIPERACILLIN AND TAZOBACTAM [Concomitant]
     Active Substance: PIPERACILLIN SODIUM\TAZOBACTAM SODIUM
     Route: 042
     Dates: start: 20181215, end: 20181225
  13. MEROPENEM. [Concomitant]
     Active Substance: MEROPENEM
     Route: 042
     Dates: start: 20181220, end: 20181225
  14. CEFOTAXIME [Concomitant]
     Active Substance: CEFOTAXIME SODIUM
     Route: 042
     Dates: start: 20190107, end: 20190117
  15. CIPROFLOXACIN. [Concomitant]
     Active Substance: CIPROFLOXACIN
     Route: 048
     Dates: start: 20181201, end: 20181208
  16. PREGABALIN. [Concomitant]
     Active Substance: PREGABALIN
     Route: 048
     Dates: start: 20181120, end: 20190120
  17. KEFZOL [Concomitant]
     Active Substance: CEFAZOLIN SODIUM
     Route: 042
     Dates: start: 20181214, end: 20181214
  18. LINEZOLID. [Concomitant]
     Active Substance: LINEZOLID
     Route: 048
     Dates: start: 20181214, end: 20181225
  19. ATEZOLIZUMAB. [Suspect]
     Active Substance: ATEZOLIZUMAB
     Indication: HORMONE-REFRACTORY PROSTATE CANCER
     Dosage: ON 15/NOV/2018, AT 11:45 HE RECEIVED HIS MOST RECENT DOSE (1200 MG) OF ATEZOLIZUMAB PRIOR TO THE AE
     Route: 042
     Dates: start: 20180509
  20. DIAMICRON [Concomitant]
     Active Substance: GLICLAZIDE
     Route: 048
     Dates: start: 20180418
  21. SUPRESSIN [Concomitant]
     Route: 048
     Dates: start: 20170625, end: 20181230
  22. NOVALGIN (METAMIZOLE SODIUM) [Concomitant]
     Active Substance: METAMIZOLE SODIUM
     Route: 048
     Dates: start: 20180913
  23. ATORVASTATIN [Concomitant]
     Active Substance: ATORVASTATIN
     Route: 048
     Dates: start: 20170625
  24. NORVASC [Concomitant]
     Active Substance: AMLODIPINE BESYLATE
     Route: 048
     Dates: start: 20170625
  25. THROMBO ASS [Concomitant]
     Active Substance: ASPIRIN
     Route: 048
     Dates: start: 20170625

REACTIONS (2)
  - Nausea [Recovered/Resolved]
  - Leukopenia [Recovered/Resolved]

NARRATIVE: CASE EVENT DATE: 20181123
